FAERS Safety Report 4885091-6 (Version None)
Quarter: 2006Q1

REPORT INFORMATION
  Report Type: 
  Country: None (occurrence: None)
  Receive Date: 20060119
  Receipt Date: 20051209
  Transmission Date: 20060701
  Serious: Yes (Other)
  Sender: FDA-Public Use
  Company Number: FR-SANOFI-SYNTHELABO-A01200508632

PATIENT
  Sex: Male
  Weight: 70 kg

DRUGS (6)
  1. PLAVIX [Suspect]
     Indication: AORTIC BYPASS
     Route: 048
     Dates: start: 19970101, end: 20050128
  2. CARDENSIEL [Concomitant]
     Indication: HYPERTENSION
     Route: 048
     Dates: start: 20041225
  3. DIGOXIN [Concomitant]
     Indication: ARRHYTHMIA
     Route: 048
     Dates: start: 20000609
  4. FUROSEMIDE [Concomitant]
     Indication: HYPERTENSION
     Route: 048
     Dates: start: 20030725
  5. ZOCOR [Concomitant]
     Indication: PROPHYLAXIS
     Dosage: UNK
     Route: 065
     Dates: start: 20020315
  6. ATARAX [Concomitant]
     Indication: ARRHYTHMIA
     Route: 048
     Dates: start: 19990330

REACTIONS (1)
  - PHLEBITIS DEEP [None]
